FAERS Safety Report 22035292 (Version 3)
Quarter: 2023Q2

REPORT INFORMATION
  Report Type: Spontaneous
  Country: US (occurrence: US)
  Receive Date: 20230224
  Receipt Date: 20230404
  Transmission Date: 20230722
  Serious: Yes (Disabling)
  Sender: FDA-Public Use
  Company Number: US-SA-SAC20230224000269

PATIENT
  Age: 52 Year
  Sex: Female
  Weight: 79.4 kg

DRUGS (54)
  1. DUPIXENT [Suspect]
     Active Substance: DUPILUMAB
     Indication: Asthma
     Dosage: 300MG QOW
     Route: 058
  2. SELENIUM [Concomitant]
     Active Substance: SELENIUM
  3. METHOCARBAMOL [Concomitant]
     Active Substance: METHOCARBAMOL
  4. METHOCARBAMOL [Concomitant]
     Active Substance: METHOCARBAMOL
  5. BACLOFEN [Concomitant]
     Active Substance: BACLOFEN
  6. ACETAMINOPHEN [Concomitant]
     Active Substance: ACETAMINOPHEN
  7. ADVAIR HFA [Concomitant]
     Active Substance: FLUTICASONE PROPIONATE\SALMETEROL XINAFOATE
  8. ALBUTEROL SULFATE [Concomitant]
     Active Substance: ALBUTEROL SULFATE
  9. ATIVAN [Concomitant]
     Active Substance: LORAZEPAM
  10. BENZONATATE [Concomitant]
     Active Substance: BENZONATATE
  11. CRESTOR [Concomitant]
     Active Substance: ROSUVASTATIN CALCIUM
  12. DILTIAZEM HYDROCHLORIDE [Concomitant]
     Active Substance: DILTIAZEM HYDROCHLORIDE
  13. DIPHENHYDRAMINE [Concomitant]
     Active Substance: DIPHENHYDRAMINE
  14. ELIQUIS [Concomitant]
     Active Substance: APIXABAN
  15. EMGALITY [Concomitant]
     Active Substance: GALCANEZUMAB-GNLM
  16. EPIPEN [Concomitant]
     Active Substance: EPINEPHRINE
  17. FAMOTIDINE [Concomitant]
     Active Substance: FAMOTIDINE
  18. FENOFIBRATE [Concomitant]
     Active Substance: FENOFIBRATE
  19. FIORICET [Concomitant]
     Active Substance: ACETAMINOPHEN\BUTALBITAL\CAFFEINE
  20. FIORICET [Concomitant]
     Active Substance: ACETAMINOPHEN\BUTALBITAL\CAFFEINE
  21. FLUDROCORTISONE [Concomitant]
     Active Substance: FLUDROCORTISONE
  22. ACETAMINOPHEN\HYDROCODONE [Concomitant]
     Active Substance: ACETAMINOPHEN\HYDROCODONE
  23. KETOCONAZOLE [Concomitant]
     Active Substance: KETOCONAZOLE
  24. KRILL OIL [Concomitant]
     Active Substance: DIETARY SUPPLEMENT\KRILL OIL
  25. LIDOCAINE [Concomitant]
     Active Substance: LIDOCAINE
  26. MAGNESIUM OXIDE [Concomitant]
     Active Substance: MAGNESIUM OXIDE
  27. METFORMIN [Concomitant]
     Active Substance: METFORMIN HYDROCHLORIDE
  28. MIDODRINE [Concomitant]
     Active Substance: MIDODRINE
  29. MOVANTIK [Concomitant]
     Active Substance: NALOXEGOL OXALATE
  30. ONDANSETRON [Concomitant]
     Active Substance: ONDANSETRON
  31. POTASSIUM CHLORIDE [Concomitant]
     Active Substance: POTASSIUM CHLORIDE
  32. PREDNISONE [Concomitant]
     Active Substance: PREDNISONE
  33. SERTRALINE [Concomitant]
     Active Substance: SERTRALINE HYDROCHLORIDE
  34. TORSEMIDE [Concomitant]
     Active Substance: TORSEMIDE
  35. .ALPHA.-TOCOPHEROL [Concomitant]
     Active Substance: .ALPHA.-TOCOPHEROL
  36. MAGNESIUM [Concomitant]
     Active Substance: MAGNESIUM
  37. MAGNESIUM [Concomitant]
     Active Substance: MAGNESIUM
  38. VITAMINS NOS [Concomitant]
     Active Substance: VITAMINS
  39. BIFIDOBACTERIUM ANIMALIS LACTIS [Concomitant]
     Active Substance: BIFIDOBACTERIUM ANIMALIS LACTIS
  40. SINGULAIR [Concomitant]
     Active Substance: MONTELUKAST SODIUM
  41. SPIRIVA [Concomitant]
     Active Substance: TIOTROPIUM BROMIDE MONOHYDRATE
  42. VITAMIN C [Concomitant]
     Active Substance: ASCORBIC ACID
  43. VITAMIN D3 [Concomitant]
     Active Substance: CHOLECALCIFEROL
  44. VITAMIN D3 [Concomitant]
     Active Substance: CHOLECALCIFEROL
  45. MOXIFLOXACIN [Concomitant]
     Active Substance: MOXIFLOXACIN
  46. CUVITRU [Concomitant]
     Active Substance: HUMAN IMMUNOGLOBULIN G
  47. LINZESS [Concomitant]
     Active Substance: LINACLOTIDE
  48. FLUDROCORTISONE ACETATE [Concomitant]
     Active Substance: FLUDROCORTISONE ACETATE
  49. SPIRIVA RESPIMAT [Concomitant]
     Active Substance: TIOTROPIUM BROMIDE
  50. PROAIR HFA [Concomitant]
     Active Substance: ALBUTEROL SULFATE
  51. PROAIR HFA [Concomitant]
     Active Substance: ALBUTEROL SULFATE
  52. VITAMIN B12 [Concomitant]
     Active Substance: CYANOCOBALAMIN
  53. BEETROOT [Concomitant]
  54. ZOFRAN [Concomitant]
     Active Substance: ONDANSETRON HYDROCHLORIDE
     Dosage: UNK

REACTIONS (10)
  - Loss of personal independence in daily activities [Not Recovered/Not Resolved]
  - Headache [Recovered/Resolved]
  - Bronchitis [Not Recovered/Not Resolved]
  - Infection [Recovered/Resolved]
  - Oropharyngeal discomfort [Unknown]
  - Asthma [Unknown]
  - Injection site reaction [Unknown]
  - Injection site erythema [Not Recovered/Not Resolved]
  - Injection site swelling [Not Recovered/Not Resolved]
  - Injection site bruising [Not Recovered/Not Resolved]

NARRATIVE: CASE EVENT DATE: 20230101
